FAERS Safety Report 7828048-5 (Version None)
Quarter: 2011Q4

REPORT INFORMATION
  Report Type: 
  Country: None (occurrence: None)
  Receive Date: 20111020
  Receipt Date: 20111010
  Transmission Date: 20120403
  Serious: Yes (Hospitalization)
  Sender: FDA-Public Use
  Company Number: FR-GLAXOSMITHKLINE-B0753960A

PATIENT
  Sex: Male

DRUGS (10)
  1. ASPIRIN [Concomitant]
     Indication: ATRIAL FIBRILLATION
     Dosage: 75MG PER DAY
     Route: 048
  2. PIASCLEDINE [Concomitant]
     Dosage: 1UNIT TWICE PER DAY
     Route: 065
  3. PROPRANOLOL [Concomitant]
     Dosage: 160MG PER DAY
     Route: 065
  4. TOPIRAMATE [Concomitant]
     Dosage: 50MG THREE TIMES PER DAY
     Route: 065
  5. PERINDOPRIL ERBUMINE [Concomitant]
     Dosage: 5MG PER DAY
     Route: 065
  6. ACETAMINOPHEN [Concomitant]
     Route: 065
  7. PREVISCAN [Suspect]
     Indication: THROMBOPHLEBITIS
     Dosage: 20MG SEE DOSAGE TEXT
     Route: 048
     Dates: start: 20110819, end: 20110821
  8. ARIXTRA [Suspect]
     Indication: THROMBOPHLEBITIS
     Dosage: 7.5MG PER DAY
     Route: 058
     Dates: start: 20110818, end: 20110821
  9. PRAVASTATIN [Concomitant]
     Route: 065
  10. TRILEPTAL [Concomitant]
     Dosage: 300MG TWELVE TIMES PER DAY
     Route: 065

REACTIONS (9)
  - RETROPERITONEAL HAEMATOMA [None]
  - FLANK PAIN [None]
  - MUSCLE HAEMORRHAGE [None]
  - BLOOD PRESSURE DECREASED [None]
  - HAEMOGLOBIN DECREASED [None]
  - GENERAL PHYSICAL HEALTH DETERIORATION [None]
  - CALCULUS BLADDER [None]
  - LIVER DISORDER [None]
  - CHOLELITHIASIS [None]
